FAERS Safety Report 12297327 (Version 2)
Quarter: 2018Q1

REPORT INFORMATION
  Report Type: Spontaneous
  Country: US (occurrence: US)
  Receive Date: 20160422
  Receipt Date: 20180312
  Transmission Date: 20180508
  Serious: Yes (Hospitalization, Disabling)
  Sender: FDA-Public Use
  Company Number: US-ENDO PHARMACEUTICALS INC.-2016-000901

PATIENT
  Age: 49 Year
  Sex: Male
  Weight: 104.31 kg

DRUGS (19)
  1. TESTIM [Suspect]
     Active Substance: TESTOSTERONE
     Indication: ANDROGEN REPLACEMENT THERAPY
     Dosage: UNK UNKNOWN, UNKNOWN
     Route: 062
     Dates: start: 200905, end: 201008
  2. ANDROGEL [Suspect]
     Active Substance: TESTOSTERONE
     Route: 065
     Dates: start: 200904
  3. FLEXERIL [Concomitant]
     Active Substance: CYCLOBENZAPRINE HYDROCHLORIDE
     Indication: MUSCLE SPASMS
     Dosage: UNK UNKNOWN, UNKNOWN
     Route: 065
     Dates: start: 2003
  4. REGLAN [Concomitant]
     Active Substance: METOCLOPRAMIDE HYDROCHLORIDE
     Indication: GASTROOESOPHAGEAL REFLUX DISEASE
     Dosage: UNK UNKNOWN, UNKNOWN
     Route: 065
     Dates: start: 2004
  5. ANDROGEL [Suspect]
     Active Substance: TESTOSTERONE
     Indication: ANDROGEN REPLACEMENT THERAPY
     Dosage: UNK UNKNOWN, UNKNOWN
     Route: 065
     Dates: start: 200904, end: 201406
  6. AVINZA [Concomitant]
     Active Substance: MORPHINE SULFATE
     Indication: INTERCOSTAL NEURALGIA
     Dosage: UNK UNKNOWN, UNKNOWN
     Route: 065
     Dates: start: 200409
  7. ZOLOFT [Concomitant]
     Active Substance: SERTRALINE HYDROCHLORIDE
     Indication: DEPRESSION
     Dosage: UNK UNKNOWN, UNKNOWN
     Route: 065
     Dates: start: 2004
  8. AXIRON [Suspect]
     Active Substance: TESTOSTERONE
     Indication: ANDROGEN REPLACEMENT THERAPY
     Dosage: UNK UNKNOWN, UNKNOWN
     Route: 065
  9. NAPROXEN. [Concomitant]
     Active Substance: NAPROXEN
     Indication: ARTHRALGIA
     Dosage: UNK UNKNOWN, UNKNOWN
     Route: 065
     Dates: start: 2005
  10. LUNESTA [Concomitant]
     Active Substance: ESZOPICLONE
     Indication: INSOMNIA
     Dosage: UNK UNKNOWN, UNKNOWN
     Route: 065
     Dates: start: 2006
  11. NEURONTIN [Concomitant]
     Active Substance: GABAPENTIN
     Indication: INTERCOSTAL NEURALGIA
     Dosage: UNK UNKNOWN, UNKNOWN
     Route: 065
     Dates: start: 2002
  12. NEXIUM [Concomitant]
     Active Substance: ESOMEPRAZOLE MAGNESIUM
     Indication: GASTROOESOPHAGEAL REFLUX DISEASE
     Dosage: UNK UNKNOWN, UNKNOWN
     Route: 065
     Dates: start: 2004
  13. GINKGO BILOBA [Concomitant]
     Active Substance: GINKGO
     Indication: AMNESIA
     Dosage: UNK UNKNOWN, UNKNOWN
     Route: 065
     Dates: start: 2005
  14. SIMVASTATIN. [Concomitant]
     Active Substance: SIMVASTATIN
     Indication: HYPERLIPIDAEMIA
     Dosage: UNK UNKNOWN, UNKNOWN
     Route: 065
     Dates: start: 2003
  15. SINGULAIR [Concomitant]
     Active Substance: MONTELUKAST SODIUM
     Indication: SEASONAL ALLERGY
     Dosage: UNK UNKNOWN, UNKNOWN
     Route: 065
     Dates: start: 2003
  16. OXYCODONE [Concomitant]
     Active Substance: OXYCODONE
     Indication: BACK PAIN
     Dosage: UNK UNKNOWN, UNKNOWN
     Route: 065
     Dates: start: 2004
  17. CYMBALTA [Concomitant]
     Active Substance: DULOXETINE HYDROCHLORIDE
     Indication: RESTLESS LEGS SYNDROME
     Route: 065
     Dates: start: 2006
  18. AMLODIPINE [Concomitant]
     Active Substance: AMLODIPINE BESYLATE
     Indication: HYPERTENSION
     Dosage: UNK UNKNOWN, UNKNOWN
     Route: 065
     Dates: start: 2005
  19. LISINOPRIL TABLETS [Concomitant]
     Active Substance: LISINOPRIL
     Indication: HYPERTENSION
     Dosage: UNK UNKNOWN, UNKNOWN
     Route: 065
     Dates: start: 2005

REACTIONS (5)
  - Cellulitis [Unknown]
  - Compartment syndrome [Unknown]
  - Sleep apnoea syndrome [Unknown]
  - Staphylococcal infection [Unknown]
  - Deep vein thrombosis [Not Recovered/Not Resolved]

NARRATIVE: CASE EVENT DATE: 20140202
